FAERS Safety Report 5146081-1 (Version None)
Quarter: 2006Q4

REPORT INFORMATION
  Report Type: 
  Country: None (occurrence: None)
  Receive Date: 20061102
  Receipt Date: 20061023
  Transmission Date: 20070319
  Serious: Yes (Other)
  Sender: FDA-Public Use
  Company Number: 2006129992

PATIENT
  Sex: Female

DRUGS (1)
  1. GENOTROPIN [Suspect]
     Indication: GROWTH HORMONE DEFICIENCY
     Dates: start: 20060101, end: 20060501

REACTIONS (4)
  - HIRSUTISM [None]
  - HYPERTHERMIA [None]
  - HYPERTROPHIC CARDIOMYOPATHY [None]
  - VIRAL INFECTION [None]
